FAERS Safety Report 22626787 (Version 3)
Quarter: 2024Q1

REPORT INFORMATION
  Report Type: Spontaneous
  Country: JP (occurrence: JP)
  Receive Date: 20230622
  Receipt Date: 20240312
  Transmission Date: 20240409
  Serious: Yes (Death, Hospitalization, Other)
  Sender: FDA-Public Use
  Company Number: JP-MSD-M2023-23417

PATIENT
  Age: 71 Year
  Sex: Female

DRUGS (6)
  1. KEYTRUDA [Suspect]
     Active Substance: PEMBROLIZUMAB
     Indication: Uterine cancer
     Dosage: 200 MILLIGRAM, Q3W
     Route: 041
     Dates: start: 202206, end: 202207
  2. KEYTRUDA [Suspect]
     Active Substance: PEMBROLIZUMAB
     Dosage: 200 MILLIGRAM, Q3W
     Route: 041
     Dates: start: 2022, end: 202209
  3. LENVATINIB MESYLATE [Suspect]
     Active Substance: LENVATINIB MESYLATE
     Indication: Uterine cancer
     Dosage: 20 MILLIGRAM, QD
     Route: 048
     Dates: start: 202206, end: 202207
  4. LENVATINIB MESYLATE [Suspect]
     Active Substance: LENVATINIB MESYLATE
     Dosage: 14 MILLIGRAM, QD
     Route: 048
     Dates: start: 2022, end: 202209
  5. AMLODIPINE BESYLATE\IRBESARTAN [Concomitant]
     Active Substance: AMLODIPINE BESYLATE\IRBESARTAN
     Indication: Hypertension
     Dosage: 100/5 MG/DAY
     Route: 048
  6. AMLODIPINE BESYLATE\IRBESARTAN [Concomitant]
     Active Substance: AMLODIPINE BESYLATE\IRBESARTAN
     Dosage: 100/10 MG/DAY
     Route: 048
     Dates: start: 2022

REACTIONS (13)
  - Malignant neoplasm progression [Fatal]
  - Intestinal obstruction [Unknown]
  - Hypophysitis [Recovering/Resolving]
  - Adrenal insufficiency [Recovering/Resolving]
  - Thyroiditis [Unknown]
  - Platelet count decreased [Recovering/Resolving]
  - Hypertension [Unknown]
  - Palmar-plantar erythrodysaesthesia syndrome [Unknown]
  - Hepatic enzyme increased [Unknown]
  - Decreased appetite [Unknown]
  - Diarrhoea [Unknown]
  - Malaise [Unknown]
  - Palmar-plantar erythrodysaesthesia syndrome [Unknown]

NARRATIVE: CASE EVENT DATE: 20220101
